FAERS Safety Report 24398617 (Version 1)
Quarter: 2024Q4

REPORT INFORMATION
  Report Type: Report from Study
  Country: ZA (occurrence: ZA)
  Receive Date: 20241004
  Receipt Date: 20241004
  Transmission Date: 20250114
  Serious: Yes (Other)
  Sender: ALEXION PHARMACEUTICALS
  Company Number: ZA-AstraZeneca-CH-00713153A

PATIENT
  Age: 66 Year

DRUGS (22)
  1. BUDESONIDE\FORMOTEROL [Suspect]
     Active Substance: BUDESONIDE\FORMOTEROL
     Indication: Asthma
     Dosage: UNK
  2. BUDESONIDE\FORMOTEROL [Suspect]
     Active Substance: BUDESONIDE\FORMOTEROL
     Dosage: UNK
  3. BUDESONIDE\FORMOTEROL [Suspect]
     Active Substance: BUDESONIDE\FORMOTEROL
     Dosage: UNK
  4. BUDESONIDE\FORMOTEROL [Suspect]
     Active Substance: BUDESONIDE\FORMOTEROL
     Dosage: UNK
  5. DISPENSING TECHNOLOGY SOLUTIONS [Concomitant]
     Route: 065
  6. DISPENSING TECHNOLOGY SOLUTIONS [Concomitant]
  7. DISPENSING TECHNOLOGY SOLUTIONS [Concomitant]
     Route: 065
  8. DISPENSING TECHNOLOGY SOLUTIONS [Concomitant]
  9. ADCOCK INGRAM PRESCRIPTION [Concomitant]
     Route: 065
  10. ADCOCK INGRAM PRESCRIPTION [Concomitant]
  11. ADCOCK INGRAM PRESCRIPTION [Concomitant]
     Route: 065
  12. ADCOCK INGRAM PRESCRIPTION [Concomitant]
  13. FOLIC ACID [Concomitant]
     Active Substance: FOLIC ACID
     Indication: Coronary artery disease
  14. FOLIC ACID [Concomitant]
     Active Substance: FOLIC ACID
     Route: 065
  15. FLUOXETINE HYDROCHLORIDE [Concomitant]
     Active Substance: FLUOXETINE HYDROCHLORIDE
     Indication: Depression
  16. FLUOXETINE HYDROCHLORIDE [Concomitant]
     Active Substance: FLUOXETINE HYDROCHLORIDE
     Route: 065
  17. OLANZAPINE [Concomitant]
     Active Substance: OLANZAPINE
  18. OLANZAPINE [Concomitant]
     Active Substance: OLANZAPINE
     Route: 065
  19. OMEPRAZOLE [Concomitant]
     Active Substance: OMEPRAZOLE
     Indication: Ulcer
  20. OMEPRAZOLE [Concomitant]
     Active Substance: OMEPRAZOLE
  21. PERINDOPRIL [Concomitant]
     Active Substance: PERINDOPRIL
     Indication: Hypertension
  22. PERINDOPRIL [Concomitant]
     Active Substance: PERINDOPRIL
     Route: 065

REACTIONS (2)
  - Dementia Alzheimer^s type [Unknown]
  - Aphasia [Unknown]
